FAERS Safety Report 13586909 (Version 1)
Quarter: 2017Q2

REPORT INFORMATION
  Report Type: Spontaneous
  Country: US (occurrence: US)
  Receive Date: 20170526
  Receipt Date: 20170526
  Transmission Date: 20170830
  Serious: Yes (Hospitalization)
  Sender: FDA-Public Use
  Company Number: US-ROCHE-1103626

PATIENT
  Age: 26 Year
  Sex: Male

DRUGS (6)
  1. VALGANCICLOVIR. [Suspect]
     Active Substance: VALGANCICLOVIR
     Indication: CASTLEMAN^S DISEASE
  2. RITUXIMAB [Concomitant]
     Active Substance: RITUXIMAB
     Indication: HIV INFECTION
  3. DOXORUBICIN [Concomitant]
     Active Substance: DOXORUBICIN
     Indication: HIV INFECTION
  4. VALGANCICLOVIR. [Suspect]
     Active Substance: VALGANCICLOVIR
     Indication: HIV INFECTION
  5. DOXORUBICIN [Concomitant]
     Active Substance: DOXORUBICIN
     Indication: CASTLEMAN^S DISEASE
  6. RITUXIMAB [Concomitant]
     Active Substance: RITUXIMAB
     Indication: CASTLEMAN^S DISEASE
     Route: 065

REACTIONS (1)
  - Febrile neutropenia [Unknown]
